FAERS Safety Report 7883216-1 (Version None)
Quarter: 2011Q4

REPORT INFORMATION
  Report Type: 
  Country: None (occurrence: None)
  Receive Date: 20111031
  Receipt Date: 20111018
  Transmission Date: 20120403
  Serious: Yes (Hospitalization)
  Sender: FDA-Public Use
  Company Number: ACO_27350_2011

PATIENT
  Age: 51 Year
  Sex: Male

DRUGS (2)
  1. REBIF [Concomitant]
  2. AMPYRA [Suspect]
     Indication: GAIT DISTURBANCE
     Dosage: 10 MG, Q 12 HRS
     Dates: start: 20100513, end: 20110101

REACTIONS (1)
  - BLOOD GLUCOSE INCREASED [None]
